FAERS Safety Report 11317425 (Version 1)
Quarter: 2015Q3

REPORT INFORMATION
  Report Type: Spontaneous
  Country: US (occurrence: None)
  Receive Date: 20150727
  Receipt Date: 20150727
  Transmission Date: 20151125
  Serious: No
  Sender: FDA-Public Use
  Company Number: None

PATIENT
  Age: 61 Year
  Sex: Female
  Weight: 65.77 kg

DRUGS (5)
  1. VITAMIN D [Concomitant]
     Active Substance: CHOLECALCIFEROL
  2. DICLOFENAC [Concomitant]
     Active Substance: DICLOFENAC
  3. CALCIUM [Concomitant]
     Active Substance: CALCIUM
  4. ALPRAZOLAM. [Concomitant]
     Active Substance: ALPRAZOLAM
  5. IBANDRONATE SODIUM. [Suspect]
     Active Substance: IBANDRONATE SODIUM
     Indication: OSTEOPOROSIS
     Route: 048
     Dates: start: 20150715

REACTIONS (7)
  - Feeling abnormal [None]
  - Fatigue [None]
  - Abdominal pain upper [None]
  - Headache [None]
  - Nausea [None]
  - Chest pain [None]
  - Dyspepsia [None]

NARRATIVE: CASE EVENT DATE: 20150715
